FAERS Safety Report 4691773-1 (Version None)
Quarter: 2005Q2

REPORT INFORMATION
  Report Type: 
  Country: None (occurrence: None)
  Receive Date: 20050615
  Receipt Date: 20050615
  Transmission Date: 20051028
  Serious: Yes (Hospitalization)
  Sender: FDA-Public Use
  Company Number: None

PATIENT
  Age: 61 Year
  Sex: Female
  Weight: 47.7 kg

DRUGS (2)
  1. GEMCITABINE [Suspect]
     Indication: NON-SMALL CELL LUNG CANCER
     Dosage: 1500MG/M2 Q2 WEEKS INTRAVENOU
     Route: 042
     Dates: start: 20041015, end: 20051126
  2. PEMETREXED [Suspect]
     Indication: NON-SMALL CELL LUNG CANCER
     Dosage: 500MG/M3 Q2 WEEKS INTRAVENOU
     Route: 042
     Dates: start: 20041015, end: 20041126

REACTIONS (2)
  - ASTHENIA [None]
  - HYPOAESTHESIA [None]
